FAERS Safety Report 4394232-9 (Version None)
Quarter: 2004Q3

REPORT INFORMATION
  Report Type: 
  Country: None (occurrence: None)
  Receive Date: 20040712
  Receipt Date: 20040615
  Transmission Date: 20050211
  Serious: Yes (Hospitalization)
  Sender: FDA-Public Use
  Company Number: PHBS2004JP08014

PATIENT

DRUGS (2)
  1. DIOVAN [Suspect]
     Dosage: 80 MG/DAY
     Route: 048
  2. ADALAT [Suspect]
     Indication: HYPERTENSION
     Dosage: 20 MG/DAY
     Route: 048

REACTIONS (2)
  - LOSS OF CONSCIOUSNESS [None]
  - SINUS ARREST [None]
